FAERS Safety Report 11061207 (Version 1)
Quarter: 2015Q2

REPORT INFORMATION
  Report Type: Spontaneous
  Country: ES (occurrence: ES)
  Receive Date: 20150424
  Receipt Date: 20150424
  Transmission Date: 20150821
  Serious: Yes (Other)
  Sender: FDA-Public Use
  Company Number: ES-ROCHE-1567813

PATIENT
  Age: 4 Year
  Sex: Female
  Weight: 9.7 kg

DRUGS (1)
  1. SOMATROPIN [Suspect]
     Active Substance: SOMATROPIN
     Indication: SMALL FOR DATES BABY
     Route: 058

REACTIONS (2)
  - Product use issue [Unknown]
  - VIIth nerve paralysis [Recovering/Resolving]
